FAERS Safety Report 15034187 (Version 1)
Quarter: 2018Q2

REPORT INFORMATION
  Report Type: Spontaneous
  Country: US (occurrence: US)
  Receive Date: 20180620
  Receipt Date: 20180620
  Transmission Date: 20180711
  Serious: No
  Sender: FDA-Public Use
  Company Number: US-TEVA-795599USA

PATIENT
  Age: 61 Year
  Sex: Female

DRUGS (2)
  1. COPAXONE [Concomitant]
     Active Substance: GLATIRAMER ACETATE
     Indication: MULTIPLE SCLEROSIS
     Route: 058
     Dates: start: 20170324
  2. PREDNISONE. [Suspect]
     Active Substance: PREDNISONE
     Route: 048
     Dates: start: 201708

REACTIONS (1)
  - Drug ineffective [Unknown]

NARRATIVE: CASE EVENT DATE: 201708
